FAERS Safety Report 9803465 (Version 1)
Quarter: 2014Q1

REPORT INFORMATION
  Report Type: Report from Study
  Country: ES (occurrence: ES)
  Receive Date: 20140108
  Receipt Date: 20140108
  Transmission Date: 20141002
  Serious: Yes (Other)
  Sender: FDA-Public Use
  Company Number: ES-ROCHE-1329388

PATIENT
  Sex: 0

DRUGS (13)
  1. RITUXIMAB [Suspect]
     Indication: DIFFUSE LARGE B-CELL LYMPHOMA
     Dosage: ON DAY 1
     Route: 065
  2. RITUXIMAB [Suspect]
     Indication: BURKITT^S LYMPHOMA
  3. ETOPOSIDE [Suspect]
     Indication: DIFFUSE LARGE B-CELL LYMPHOMA
     Dosage: DAYS 1-4, 21 DAYS CYCLE.
     Route: 065
  4. ETOPOSIDE [Suspect]
     Indication: BURKITT^S LYMPHOMA
  5. CISPLATINE [Suspect]
     Indication: DIFFUSE LARGE B-CELL LYMPHOMA
     Dosage: DAYS 1-4, 21 DAYS CYCLE
     Route: 065
  6. CISPLATINE [Suspect]
     Indication: BURKITT^S LYMPHOMA
  7. CITARABINA [Suspect]
     Indication: DIFFUSE LARGE B-CELL LYMPHOMA
     Dosage: DAY 5, 21 DAYS CYCLE
     Route: 065
  8. CITARABINA [Suspect]
     Indication: BURKITT^S LYMPHOMA
  9. METHYLPREDNISOLONE [Suspect]
     Indication: DIFFUSE LARGE B-CELL LYMPHOMA
     Dosage: DAYS 1-5, 21 DAYS CYCLE
     Route: 065
  10. METHYLPREDNISOLONE [Suspect]
     Indication: BURKITT^S LYMPHOMA
  11. LENALIDOMIDE [Suspect]
     Indication: DIFFUSE LARGE B-CELL LYMPHOMA
     Dosage: 1 TO 14 OF EVERY 21-DAY CYCLE
     Route: 065
  12. LENALIDOMIDE [Suspect]
     Indication: BURKITT^S LYMPHOMA
     Dosage: 1 TO 14 OF EVERY 21-DAY CYCLE
     Route: 065
  13. LENALIDOMIDE [Suspect]
     Dosage: 1 TO 14 OF EVERY 21-DAY CYCLE
     Route: 065

REACTIONS (8)
  - Angioedema [Unknown]
  - Febrile neutropenia [Unknown]
  - Pneumonia [Unknown]
  - Sepsis [Unknown]
  - Electrolyte imbalance [Unknown]
  - Nephropathy toxic [Unknown]
  - Thrombosis [Unknown]
  - Hepatotoxicity [Unknown]
